FAERS Safety Report 15573593 (Version 2)
Quarter: 2019Q1

REPORT INFORMATION
  Report Type: Spontaneous
  Country: GB (occurrence: GB)
  Receive Date: 20181101
  Receipt Date: 20190307
  Transmission Date: 20190417
  Serious: Yes (Other)
  Sender: FDA-Public Use
  Company Number: GB-TEVA-2018-GB-970477

PATIENT
  Age: 8 Year

DRUGS (1)
  1. FUROSEMIDE. [Suspect]
     Active Substance: FUROSEMIDE
     Route: 065
     Dates: start: 20180910

REACTIONS (3)
  - Syncope [Unknown]
  - Seizure [Unknown]
  - Chest pain [Unknown]

NARRATIVE: CASE EVENT DATE: 20180910
